FAERS Safety Report 6604189-5 (Version None)
Quarter: 2010Q1

REPORT INFORMATION
  Report Type: 
  Country: None (occurrence: None)
  Receive Date: 20100226
  Receipt Date: 20090626
  Transmission Date: 20100710
  Serious: No
  Sender: FDA-Public Use
  Company Number: A0793976A

PATIENT
  Age: 45 Year
  Sex: Male

DRUGS (2)
  1. LAMICTAL CD [Suspect]
     Indication: DRUG USE FOR UNKNOWN INDICATION
     Dosage: 100MG TWICE PER DAY
     Route: 048
     Dates: start: 20090501, end: 20090601
  2. NO CONCURRENT MEDICATION [Concomitant]

REACTIONS (1)
  - ADVERSE DRUG REACTION [None]
